FAERS Safety Report 6285126-2 (Version None)
Quarter: 2009Q3

REPORT INFORMATION
  Report Type: 
  Country: None (occurrence: None)
  Receive Date: 20090727
  Receipt Date: 20090715
  Transmission Date: 20100115
  Serious: Yes (Other)
  Sender: FDA-Public Use
  Company Number: GB-PFIZER INC-2009240484

PATIENT
  Age: 31 Year

DRUGS (1)
  1. CHAMPIX [Suspect]
     Indication: SMOKING CESSATION THERAPY
     Dosage: 1 MG, UNK
     Dates: start: 20090527, end: 20090628

REACTIONS (4)
  - ALCOHOL INTOLERANCE [None]
  - ANXIETY [None]
  - DEPRESSION [None]
  - TEARFULNESS [None]
